FAERS Safety Report 17005464 (Version 1)
Quarter: 2019Q4

REPORT INFORMATION
  Report Type: Spontaneous
  Country: JP (occurrence: JP)
  Receive Date: 20191107
  Receipt Date: 20191107
  Transmission Date: 20200122
  Serious: Yes (Other)
  Sender: FDA-Public Use
  Company Number: JP-BAYER-2019-200948

PATIENT
  Sex: Male

DRUGS (1)
  1. XOFIGO [Suspect]
     Active Substance: RADIUM RA-223 DICHLORIDE
     Dosage: 55KBQ/KG, ONCE
     Route: 042
     Dates: start: 201910, end: 201910

REACTIONS (2)
  - Metastases to spine [None]
  - Pain in extremity [None]

NARRATIVE: CASE EVENT DATE: 2019
